FAERS Safety Report 17749457 (Version 5)
Quarter: 2020Q2

REPORT INFORMATION
  Report Type: Report from Study
  Country: DE (occurrence: DE)
  Receive Date: 20200506
  Receipt Date: 20200529
  Transmission Date: 20200714
  Serious: Yes (Death, Hospitalization, Other)
  Sender: FDA-Public Use
  Company Number: DE-BRISTOL-MYERS SQUIBB COMPANY-BMS-2018-070743

PATIENT
  Age: 51 Year
  Sex: Male
  Weight: 101 kg

DRUGS (24)
  1. NIVOLUMAB [Suspect]
     Active Substance: NIVOLUMAB
     Indication: MALIGNANT MELANOMA
     Dosage: 116.24 MILLIGRAM, Q3WK
     Route: 042
     Dates: start: 20180619, end: 20180710
  2. IPILIMUMAB [Suspect]
     Active Substance: IPILIMUMAB
     Indication: PRODUCT USED FOR UNKNOWN INDICATION
     Dosage: 346.32 MG, Q3WK
     Route: 065
     Dates: start: 20180619
  3. NIVOLUMAB [Suspect]
     Active Substance: NIVOLUMAB
     Indication: PRODUCT USED FOR UNKNOWN INDICATION
     Dosage: 237.7 MILLIGRAM
     Route: 065
     Dates: start: 20181106
  4. NIVOLUMAB [Suspect]
     Active Substance: NIVOLUMAB
     Indication: PRODUCT USED FOR UNKNOWN INDICATION
     Dosage: 233.37 MILLIGRAM
     Route: 065
     Dates: start: 20181120
  5. NIVOLUMAB [Suspect]
     Active Substance: NIVOLUMAB
     Indication: PRODUCT USED FOR UNKNOWN INDICATION
     Dosage: 235.96 MILLIGRAM
     Route: 065
     Dates: start: 20190409
  6. IPILIMUMAB [Suspect]
     Active Substance: IPILIMUMAB
     Indication: PRODUCT USED FOR UNKNOWN INDICATION
     Dosage: 107.97, Q3WK
     Route: 065
     Dates: start: 20180619, end: 20191018
  7. NIVOLUMAB [Suspect]
     Active Substance: NIVOLUMAB
     Indication: PRODUCT USED FOR UNKNOWN INDICATION
     Dosage: 119.19 MILLIGRAM, Q2WK
     Route: 042
     Dates: start: 20180619, end: 20180726
  8. NIVOLUMAB [Suspect]
     Active Substance: NIVOLUMAB
     Indication: PRODUCT USED FOR UNKNOWN INDICATION
     Dosage: 242.93 MILLIGRAM
     Route: 065
     Dates: start: 20181204
  9. NIVOLUMAB [Suspect]
     Active Substance: NIVOLUMAB
     Indication: PRODUCT USED FOR UNKNOWN INDICATION
     Dosage: 241.24 MILLIGRAM
     Route: 065
     Dates: start: 20190312
  10. NIVOLUMAB [Suspect]
     Active Substance: NIVOLUMAB
     Indication: PRODUCT USED FOR UNKNOWN INDICATION
     Dosage: 236.32 MILLIGRAM
     Route: 065
     Dates: start: 20190423
  11. NIVOLUMAB [Suspect]
     Active Substance: NIVOLUMAB
     Indication: PRODUCT USED FOR UNKNOWN INDICATION
     Dosage: 239.27 MILLIGRAM
     Route: 065
     Dates: start: 20181218
  12. NIVOLUMAB [Suspect]
     Active Substance: NIVOLUMAB
     Indication: PRODUCT USED FOR UNKNOWN INDICATION
     Dosage: 235.24 MILLIGRAM
     Route: 065
     Dates: start: 20190128
  13. NIVOLUMAB [Suspect]
     Active Substance: NIVOLUMAB
     Indication: PRODUCT USED FOR UNKNOWN INDICATION
     Dosage: 238.29 MILLIGRAM
     Route: 065
     Dates: start: 20190226
  14. IPILIMUMAB [Suspect]
     Active Substance: IPILIMUMAB
     Indication: MALIGNANT MELANOMA
     Dosage: 346.32 MG, Q3WK
     Route: 065
     Dates: start: 20180619, end: 20180710
  15. MIRTAZAPIN [Concomitant]
     Active Substance: MIRTAZAPINE
     Indication: PRODUCT USED FOR UNKNOWN INDICATION
     Dosage: UNK
     Route: 065
  16. NIVOLUMAB [Suspect]
     Active Substance: NIVOLUMAB
     Indication: PRODUCT USED FOR UNKNOWN INDICATION
     Dosage: 238.98 MILLIGRAM
     Route: 065
     Dates: start: 20190102
  17. NIVOLUMAB [Suspect]
     Active Substance: NIVOLUMAB
     Indication: PRODUCT USED FOR UNKNOWN INDICATION
     Dosage: 239.76 MILLIGRAM
     Route: 065
     Dates: start: 20190326
  18. IPILIMUMAB [Suspect]
     Active Substance: IPILIMUMAB
     Indication: PRODUCT USED FOR UNKNOWN INDICATION
     Dosage: 346.32 MILLIGRAM
     Route: 065
     Dates: start: 20180710
  19. NIVOLUMAB [Suspect]
     Active Substance: NIVOLUMAB
     Indication: PRODUCT USED FOR UNKNOWN INDICATION
     Dosage: 240.55 MILLIGRAM
     Route: 065
     Dates: start: 20190212
  20. NIVOLUMAB [Suspect]
     Active Substance: NIVOLUMAB
     Indication: PRODUCT USED FOR UNKNOWN INDICATION
     Dosage: 237.6 MILLIGRAM, Q2WK
     Route: 042
     Dates: start: 20181023
  21. OXYCODONE HYDROCHLORIDE. [Concomitant]
     Active Substance: OXYCODONE HYDROCHLORIDE
     Indication: PRODUCT USED FOR UNKNOWN INDICATION
     Dosage: UNK
     Route: 065
  22. METAMIZOL SODIUM [Concomitant]
     Active Substance: METAMIZOL SODIUM
     Indication: PRODUCT USED FOR UNKNOWN INDICATION
     Dosage: UNK
     Route: 065
  23. NIVOLUMAB [Suspect]
     Active Substance: NIVOLUMAB
     Indication: PRODUCT USED FOR UNKNOWN INDICATION
     Dosage: 238.88 MILLIGRAM, Q2WK
     Route: 042
     Dates: start: 20180619
  24. NIVOLUMAB [Suspect]
     Active Substance: NIVOLUMAB
     Indication: PRODUCT USED FOR UNKNOWN INDICATION
     Dosage: 237.5 MILLIGRAM
     Route: 065
     Dates: start: 20190115

REACTIONS (3)
  - Autoimmune hepatitis [Recovered/Resolved]
  - Thrombocytopenia [Recovering/Resolving]
  - Hepatosplenomegaly [Not Recovered/Not Resolved]

NARRATIVE: CASE EVENT DATE: 20180723
